FAERS Safety Report 17027445 (Version 1)
Quarter: 2019Q4

REPORT INFORMATION
  Report Type: Spontaneous
  Country: US (occurrence: US)
  Receive Date: 20191113
  Receipt Date: 20191113
  Transmission Date: 20200122
  Serious: Yes (Hospitalization, Other)
  Sender: FDA-Public Use
  Company Number: US-THERAPEUTICSMD-2019TMD04287

PATIENT
  Sex: Female
  Weight: 73.02 kg

DRUGS (2)
  1. IMVEXXY [Suspect]
     Active Substance: ESTRADIOL
     Indication: VULVOVAGINAL PAIN
     Dosage: 1 DOSAGE UNITS, 2X/WEEK (SUNDAY AND WEDNESDAY)
     Route: 067
     Dates: start: 201910, end: 20191025
  2. IMVEXXY [Suspect]
     Active Substance: ESTRADIOL
     Dosage: 1 DOSAGE UNITS, 2X/WEEK (SUNDAY AND WEDNESDAY)
     Route: 067
     Dates: start: 2018, end: 201909

REACTIONS (5)
  - Gastrointestinal infection [Unknown]
  - Arthritis infective [Unknown]
  - Off label use [Not Recovered/Not Resolved]
  - Fall [Recovered/Resolved]
  - Femur fracture [Unknown]

NARRATIVE: CASE EVENT DATE: 2018
